FAERS Safety Report 17780176 (Version 1)
Quarter: 2020Q2

REPORT INFORMATION
  Report Type: Spontaneous
  Country: US (occurrence: US)
  Receive Date: 20200513
  Receipt Date: 20200513
  Transmission Date: 20200714
  Serious: Yes (Other)
  Sender: FDA-Public Use
  Company Number: US-FRESENIUS KABI-FK202004597

PATIENT
  Age: 66 Year
  Sex: Male

DRUGS (3)
  1. DARATUMUMAB [Suspect]
     Active Substance: DARATUMUMAB
     Indication: IMMUNOSUPPRESSANT DRUG THERAPY
     Dosage: UNKNOWN
     Route: 065
  2. DEXAMETHASONE INJECTION (MANUFACTURER UNKNOWN) [Suspect]
     Active Substance: DEXAMETHASONE
     Indication: IMMUNOSUPPRESSANT DRUG THERAPY
     Dosage: UNKNOWN
     Route: 065
  3. IXAZOMIB [Suspect]
     Active Substance: IXAZOMIB
     Indication: IMMUNOSUPPRESSANT DRUG THERAPY
     Dosage: UNKNOWN
     Route: 065

REACTIONS (3)
  - Epstein-Barr viraemia [Recovered/Resolved]
  - Cytomegalovirus viraemia [Recovered/Resolved]
  - Nocardiosis [Recovered/Resolved]
